FAERS Safety Report 5029854-5 (Version None)
Quarter: 2006Q2

REPORT INFORMATION
  Report Type: 
  Country: None (occurrence: None)
  Receive Date: 20060614
  Receipt Date: 20060522
  Transmission Date: 20061013
  Serious: Yes (Hospitalization)
  Sender: FDA-Public Use
  Company Number: US200605004800

PATIENT
  Age: 21 Year
  Sex: Female
  Weight: 51.7 kg

DRUGS (4)
  1. HUMULIN R [Suspect]
     Indication: BLOOD GLUCOSE INCREASED
     Dosage: AS NEEDED
  2. HUMULIN N [Suspect]
     Indication: BLOOD GLUCOSE INCREASED
     Dosage: 27 U, EACH MORNING
  3. ILETIN [Suspect]
     Indication: GESTATIONAL DIABETES
     Dates: start: 19530101
  4. ILETIN [Suspect]
     Indication: GESTATIONAL DIABETES
     Dates: start: 19530101

REACTIONS (5)
  - DRUG EXPOSURE DURING PREGNANCY [None]
  - EYE DISORDER [None]
  - FALL [None]
  - LOWER LIMB FRACTURE [None]
  - PHARMACEUTICAL PRODUCT COMPLAINT [None]
